FAERS Safety Report 11560607 (Version 1)
Quarter: 2015Q3

REPORT INFORMATION
  Report Type: Spontaneous
  Country: US (occurrence: US)
  Receive Date: 20150916
  Receipt Date: 20150916
  Transmission Date: 20151125
  Serious: No
  Sender: FDA-Public Use
  Company Number: US-ELI_LILLY_AND_COMPANY-US200809006796

PATIENT
  Age: 73 Year
  Sex: Female

DRUGS (6)
  1. CYCLOBENZAPRINE [Concomitant]
     Active Substance: CYCLOBENZAPRINE
  2. LIPITOR [Concomitant]
     Active Substance: ATORVASTATIN CALCIUM
  3. FORTEO [Suspect]
     Active Substance: TERIPARATIDE
     Dosage: 20 UG, DAILY (1/D)
     Dates: start: 200710
  4. IBUPROFEN. [Concomitant]
     Active Substance: IBUPROFEN
  5. TRIAMTERENE. [Concomitant]
     Active Substance: TRIAMTERENE
  6. NAPROXEN. [Concomitant]
     Active Substance: NAPROXEN

REACTIONS (6)
  - Injection site pain [Not Recovered/Not Resolved]
  - Blood calcium decreased [Unknown]
  - Injection site haemorrhage [Recovered/Resolved]
  - Injection site papule [Recovering/Resolving]
  - Rash pruritic [Not Recovered/Not Resolved]
  - Rash maculo-papular [Not Recovered/Not Resolved]

NARRATIVE: CASE EVENT DATE: 200805
